FAERS Safety Report 25012292 (Version 2)
Quarter: 2025Q2

REPORT INFORMATION
  Report Type: Spontaneous
  Country: US (occurrence: US)
  Receive Date: 20250226
  Receipt Date: 20250501
  Transmission Date: 20250717
  Serious: No
  Sender: ABBVIE
  Company Number: US-ABBVIE-6147561

PATIENT
  Age: 65 Year
  Sex: Female
  Weight: 150 kg

DRUGS (2)
  1. ARMOUR THYROID [Suspect]
     Active Substance: THYROID, PORCINE
     Indication: Product used for unknown indication
     Dosage: PILL
     Route: 048
     Dates: start: 20250216, end: 20250217
  2. LIOTHYRONINE SODIUM [Concomitant]
     Active Substance: LIOTHYRONINE SODIUM
     Indication: Product used for unknown indication
     Dosage: 2.5MCG, PILL
     Route: 048

REACTIONS (5)
  - Insomnia [Unknown]
  - Drug intolerance [Unknown]
  - Feeling hot [Unknown]
  - Irritability [Unknown]
  - Wrong technique in product usage process [Unknown]
